FAERS Safety Report 11281378 (Version 5)
Quarter: 2015Q3

REPORT INFORMATION
  Report Type: Spontaneous
  Country: CN (occurrence: CN)
  Receive Date: 20150717
  Receipt Date: 20150828
  Transmission Date: 20151125
  Serious: Yes (Hospitalization, Other)
  Sender: FDA-Public Use
  Company Number: CN-009507513-1507CHN007847

PATIENT
  Age: 46 Year
  Sex: Female
  Weight: 60 kg

DRUGS (20)
  1. CISPLATIN. [Concomitant]
     Active Substance: CISPLATIN
     Indication: CHEMOTHERAPY
     Dosage: 40 MG, DAY1 TO DAY 2, TREATMENT CYCLE: 1/UNK
     Route: 041
     Dates: start: 20150626, end: 20150627
  2. DEXAMETHASONE. [Concomitant]
     Active Substance: DEXAMETHASONE
     Indication: ANTIALLERGIC THERAPY
     Dosage: 5 MG, QD
     Route: 042
     Dates: start: 20150626, end: 20150629
  3. THYMOSIN [Concomitant]
     Active Substance: THYMOSIN
     Indication: IMMUNE ENHANCEMENT THERAPY
     Dosage: 90 MG, QD
     Route: 041
     Dates: start: 20150623
  4. TROPISETRON [Concomitant]
     Active Substance: TROPISETRON
     Indication: PROPHYLAXIS OF NAUSEA AND VOMITING
     Dosage: 5 MG, BID
     Route: 042
     Dates: start: 20150626, end: 20150629
  5. EMEND [Suspect]
     Active Substance: APREPITANT
     Indication: PROPHYLAXIS OF NAUSEA AND VOMITING
     Dosage: 125 MG (DAY 1)
     Route: 048
     Dates: start: 20150626, end: 20150626
  6. GEMCITABINE [Concomitant]
     Active Substance: GEMCITABINE\GEMCITABINE HYDROCHLORIDE
     Dosage: 1.6G DAY 8, TREATMENT CYCLE: 1/UNK
     Route: 041
     Dates: start: 20150703, end: 20150703
  7. EMEND [Suspect]
     Active Substance: APREPITANT
     Dosage: 80 MG (DAY 2)
     Route: 048
     Dates: start: 20150627, end: 20150627
  8. EMEND [Suspect]
     Active Substance: APREPITANT
     Dosage: 80 MG (DAY 3)
     Route: 048
     Dates: start: 20150628, end: 20150628
  9. PALONOSETRON HYDROCHLORIDE [Concomitant]
     Active Substance: PALONOSETRON HYDROCHLORIDE
     Indication: PROPHYLAXIS OF NAUSEA AND VOMITING
     Dosage: 0.25 MG, QD
     Route: 042
     Dates: start: 20150626, end: 20150626
  10. PYRIDOXINE [Concomitant]
     Active Substance: PYRIDOXINE
     Indication: FLUID REPLACEMENT
     Dosage: 100 MG, QD
     Route: 041
     Dates: start: 20150626, end: 20150629
  11. CISPLATIN. [Concomitant]
     Active Substance: CISPLATIN
     Dosage: 30 MG, DAY 3, TREATMENT CYCLE: 1/UNK
     Route: 041
     Dates: start: 20150628, end: 20150628
  12. DEXAMETHASONE. [Concomitant]
     Active Substance: DEXAMETHASONE
     Dosage: 5 MG, QD
     Route: 042
     Dates: start: 20150703, end: 20150703
  13. DIPHENHYDRAMINE. [Concomitant]
     Active Substance: DIPHENHYDRAMINE
     Indication: PROPHYLAXIS OF NAUSEA AND VOMITING
     Dosage: 40 MG, QD
     Route: 030
     Dates: start: 20150626, end: 20150626
  14. LACTULOSE. [Concomitant]
     Active Substance: LACTULOSE
     Indication: PURGING
     Dosage: TID, TOTAL DALIY DOSE: 45ML/CC
     Route: 048
     Dates: start: 20150628, end: 20150628
  15. GEMCITABINE [Concomitant]
     Active Substance: GEMCITABINE\GEMCITABINE HYDROCHLORIDE
     Indication: CHEMOTHERAPY
     Dosage: 1.6G, DAY 1, TREATMENT CYCLE: 1/UNK
     Route: 041
     Dates: start: 20150626, end: 20150626
  16. ESTAZOLAM. [Concomitant]
     Active Substance: ESTAZOLAM
     Indication: SLEEP DISORDER THERAPY
     Dosage: 1 MG, QN
     Route: 048
     Dates: start: 20150701, end: 20150704
  17. BOVINE SPLEEN [Concomitant]
     Indication: IMMUNE ENHANCEMENT THERAPY
     Dosage: 10ML/CC, QD
     Route: 041
     Dates: start: 20150623
  18. PALONOSETRON HYDROCHLORIDE [Concomitant]
     Active Substance: PALONOSETRON HYDROCHLORIDE
     Dosage: 0.25 MG, QD
     Route: 042
     Dates: start: 20150703, end: 20150703
  19. NIFEDIPINE. [Concomitant]
     Active Substance: NIFEDIPINE
     Indication: BLOOD PRESSURE INCREASED
     Dosage: 30 MG, QD
     Route: 048
     Dates: start: 20150623
  20. HEPARIN SODIUM. [Concomitant]
     Active Substance: HEPARIN SODIUM
     Indication: PROPHYLAXIS
     Dosage: TOTAL DAILY DOSE: 12500 U
     Route: 033
     Dates: start: 20150623

REACTIONS (2)
  - Metastases to central nervous system [Not Recovered/Not Resolved]
  - Epilepsy [Not Recovered/Not Resolved]

NARRATIVE: CASE EVENT DATE: 20150630
